FAERS Safety Report 7342075-6 (Version None)
Quarter: 2011Q1

REPORT INFORMATION
  Report Type: 
  Country: None (occurrence: None)
  Receive Date: 20110309
  Receipt Date: 20110228
  Transmission Date: 20110831
  Serious: Yes (Other)
  Sender: FDA-Public Use
  Company Number: CA-ASTRAZENECA-2011SE11257

PATIENT
  Age: 69 Year
  Sex: Male

DRUGS (5)
  1. CRESTOR [Suspect]
     Indication: HYPERCHOLESTEROLAEMIA
     Route: 048
     Dates: start: 20091201
  2. SYNTHROID [Concomitant]
     Dosage: DAILY DOSE 75
  3. MONICOR [Concomitant]
     Dosage: DAILY DOSE 2.5
  4. ZYPREXA [Suspect]
     Route: 065
     Dates: start: 20050101
  5. ASPIRIN [Concomitant]
     Dosage: DAILY DOSE 80

REACTIONS (1)
  - HEPATIC CIRRHOSIS [None]
